FAERS Safety Report 5472375-6 (Version None)
Quarter: 2007Q3

REPORT INFORMATION
  Report Type: 
  Country: None (occurrence: None)
  Receive Date: 20070927
  Receipt Date: 20070917
  Transmission Date: 20080115
  Serious: Yes (Hospitalization)
  Sender: FDA-Public Use
  Company Number: 2007SP018736

PATIENT
  Age: 47 Year
  Sex: Male
  Weight: 109 kg

DRUGS (13)
  1. TEMODAR [Suspect]
     Indication: GLIOBLASTOMA MULTIFORME
     Dosage: 200 MG/M2; QD; PO
     Route: 048
     Dates: start: 20070227, end: 20070303
  2. IRINOTECAN HCL [Suspect]
     Indication: GLIOBLASTOMA MULTIFORME
     Dosage: 125 MG/M2; IV
     Route: 042
     Dates: start: 20070227, end: 20070306
  3. DECADRON [Concomitant]
  4. LORTAB [Concomitant]
  5. CELEXA [Concomitant]
  6. ZOFRAN [Concomitant]
  7. PEPCID [Concomitant]
  8. IMODIUM [Concomitant]
  9. MULTI-VITAMIN [Concomitant]
  10. CALTRATE [Concomitant]
  11. VITAMIN E [Concomitant]
  12. FIBER [Concomitant]
  13. ASCORBIC ACID [Concomitant]

REACTIONS (9)
  - ATELECTASIS [None]
  - CEREBRAL VENTRICLE DILATATION [None]
  - DEVICE MALFUNCTION [None]
  - DEVICE RELATED INFECTION [None]
  - GLIOBLASTOMA MULTIFORME [None]
  - LOBAR PNEUMONIA [None]
  - MALIGNANT NEOPLASM PROGRESSION [None]
  - MENINGITIS [None]
  - SURGICAL PROCEDURE REPEATED [None]
